FAERS Safety Report 6020154-3 (Version None)
Quarter: 2008Q4

REPORT INFORMATION
  Report Type: 
  Country: None (occurrence: None)
  Receive Date: 20081223
  Receipt Date: 20081223
  Transmission Date: 20090506
  Serious: Yes (Hospitalization)
  Sender: FDA-Public Use
  Company Number: None

PATIENT
  Age: 60 Year
  Sex: Female

DRUGS (1)
  1. METHYLPREDNISOLONE 4MG TAB [Suspect]
     Indication: RENAL TRANSPLANT
     Dosage: TAKE 1 TABLET (4 MG) EVERY OTHER DAY

REACTIONS (6)
  - DYSPNOEA [None]
  - EAR DISCOMFORT [None]
  - GASTRIC DISORDER [None]
  - PHARYNGEAL OEDEMA [None]
  - SENSORY DISTURBANCE [None]
  - TONGUE DISORDER [None]
